FAERS Safety Report 24278450 (Version 1)
Quarter: 2024Q3

REPORT INFORMATION
  Report Type: Spontaneous
  Country: FR (occurrence: FR)
  Receive Date: 20240903
  Receipt Date: 20240903
  Transmission Date: 20241016
  Serious: Yes (Hospitalization, Other)
  Sender: MERCK
  Company Number: None

PATIENT
  Age: 68 Year
  Sex: Male
  Weight: 59.7 kg

DRUGS (16)
  1. KEYTRUDA [Suspect]
     Active Substance: PEMBROLIZUMAB
     Indication: Lung adenocarcinoma
     Dosage: 200 MILLIGRAM
     Route: 042
     Dates: start: 20240402, end: 20240625
  2. CARBOPLATIN [Suspect]
     Active Substance: CARBOPLATIN
     Indication: Lung adenocarcinoma
     Dosage: 513 MILLIGRAM, ONCE
     Route: 042
     Dates: start: 20240625, end: 20240625
  3. CARBOPLATIN [Suspect]
     Active Substance: CARBOPLATIN
     Dosage: 884 MILLIGRAM, ONCE
     Route: 042
     Dates: start: 20240402, end: 20240402
  4. CARBOPLATIN [Suspect]
     Active Substance: CARBOPLATIN
     Dosage: 611 MILLIGRAM, ONCE
     Route: 042
     Dates: start: 20240604, end: 20240604
  5. CARBOPLATIN [Suspect]
     Active Substance: CARBOPLATIN
     Dosage: 744 MILLIGRAM, ONCE
     Route: 042
     Dates: start: 20240515, end: 20240515
  6. CARBOPLATIN [Suspect]
     Active Substance: CARBOPLATIN
     Dosage: 832 MILLIGRAM, ONCE
     Route: 042
     Dates: start: 20240423, end: 20240423
  7. PEMETREXED [Suspect]
     Active Substance: PEMETREXED
     Indication: Lung adenocarcinoma
     Dosage: 100 MILLIGRAM, ONCE
     Route: 042
     Dates: start: 20240515, end: 20240515
  8. PEMETREXED [Suspect]
     Active Substance: PEMETREXED
     Dosage: 100 MILLIGRAM, ONCE
     Route: 042
     Dates: start: 20240423, end: 20240423
  9. PEMETREXED [Suspect]
     Active Substance: PEMETREXED
     Dosage: 842 MILLIGRAM, ONCE
     Route: 042
     Dates: start: 20240625, end: 20240625
  10. PEMETREXED [Suspect]
     Active Substance: PEMETREXED
     Dosage: 842 MILLIGRAM, ONCE
     Route: 042
     Dates: start: 20240604, end: 20240604
  11. PEMETREXED [Suspect]
     Active Substance: PEMETREXED
     Dosage: 100 MILLIGRAM, ONCE
     Route: 042
     Dates: start: 20240402, end: 20240402
  12. EMEND [Concomitant]
     Active Substance: APREPITANT
     Dosage: UNK
  13. ONDANSETRON [Concomitant]
     Active Substance: ONDANSETRON
     Dosage: UNK
  14. SOLU-MEDROL [Concomitant]
     Active Substance: METHYLPREDNISOLONE SODIUM SUCCINATE
     Dosage: UNK
  15. LEVOTHYROXINE [Concomitant]
     Active Substance: LEVOTHYROXINE\LEVOTHYROXINE SODIUM
     Dosage: UNK
  16. ALLOPURINOL [Concomitant]
     Active Substance: ALLOPURINOL
     Dosage: UNK

REACTIONS (1)
  - Meningitis aseptic [Recovered/Resolved]

NARRATIVE: CASE EVENT DATE: 20240728
